FAERS Safety Report 7506615-6 (Version None)
Quarter: 2011Q2

REPORT INFORMATION
  Report Type: 
  Country: None (occurrence: None)
  Receive Date: 20110526
  Receipt Date: 20110516
  Transmission Date: 20111010
  Serious: Yes (Other)
  Sender: FDA-Public Use
  Company Number: US-BAYER-2011-028029

PATIENT
  Age: 52 Year
  Sex: Female
  Weight: 145 kg

DRUGS (16)
  1. BETASERON [Suspect]
     Dosage: 6 MIU, QOD, WEEKS 5-6
     Route: 058
  2. BETASERON [Suspect]
     Dosage: 4 MIU, QOD, WEEKS 3-4
     Route: 058
  3. OMEPRAZOLE [Concomitant]
     Dosage: 20 MG, UNK
  4. XANAX [Concomitant]
  5. SERTRALINE HYDROCHLORIDE [Concomitant]
     Dosage: 50 MG, UNK
  6. CALCITRIOL [Concomitant]
     Dosage: 0.5 ?G, UNK
  7. NORTRIPTYLINE HYDROCHLORIDE [Concomitant]
     Dosage: 50 MG, UNK
  8. AMPHETAMINE AND DEXTROAMPHETAMINE SALTS [Concomitant]
     Dosage: 5 MG, UNK
  9. VITAMIN D [Concomitant]
     Dosage: 2000 U, UNK
  10. ADDERALL 10 [Concomitant]
  11. BETASERON [Suspect]
     Indication: RELAPSING-REMITTING MULTIPLE SCLEROSIS
     Dosage: 2 MIU, QOD, WEEKS 1-2
     Route: 058
     Dates: start: 20110201, end: 20110330
  12. BETASERON [Suspect]
     Dosage: 8 MIU, QOD, WEEKS 7+
     Route: 058
  13. LEVOXYL [Concomitant]
     Dosage: 112 ?G, UNK
  14. RESTORIL [Concomitant]
  15. LIPITOR [Concomitant]
     Dosage: 20 MG, UNK
  16. VITAMIN B3 [Concomitant]

REACTIONS (5)
  - PALPITATIONS [None]
  - CIRCULATORY COLLAPSE [None]
  - DEPRESSIVE SYMPTOM [None]
  - MYALGIA [None]
  - BLOOD PRESSURE INCREASED [None]
